FAERS Safety Report 4391437-8 (Version None)
Quarter: 2004Q3

REPORT INFORMATION
  Report Type: 
  Country: None (occurrence: None)
  Receive Date: 20040707
  Receipt Date: 20040520
  Transmission Date: 20050211
  Serious: Yes (Hospitalization)
  Sender: FDA-Public Use
  Company Number: JP-GLAXOSMITHKLINE-B0333447A

PATIENT
  Age: 61 Year
  Sex: Female

DRUGS (8)
  1. VALTREX [Suspect]
     Indication: HERPES ZOSTER
     Dosage: 1000MG THREE TIMES PER DAY
     Route: 048
     Dates: start: 20040517, end: 20040519
  2. NORVASC [Concomitant]
     Dosage: 5MG PER DAY
     Route: 048
  3. ACECOL [Concomitant]
     Dosage: 1MG PER DAY
     Route: 048
  4. SODIUM BICARBONATE [Concomitant]
     Dosage: .5G THREE TIMES PER DAY
     Route: 065
  5. SELBEX [Concomitant]
     Dosage: .5G THREE TIMES PER DAY
     Route: 048
  6. ALLOPURINOL TAB [Concomitant]
     Dosage: 50MG PER DAY
     Route: 048
  7. PRAVASTATIN SODIUM [Concomitant]
     Dosage: 10MG PER DAY
     Route: 048
  8. CINAL [Concomitant]
     Dosage: .25G TWICE PER DAY
     Route: 048

REACTIONS (2)
  - OVERDOSE [None]
  - SPEECH DISORDER [None]
